FAERS Safety Report 8714664 (Version 3)
Quarter: 2017Q2

REPORT INFORMATION
  Report Type: Spontaneous
  Country: JP (occurrence: JP)
  Receive Date: 20120809
  Receipt Date: 20170613
  Transmission Date: 20170830
  Serious: Yes (Death, Hospitalization, Other)
  Sender: FDA-Public Use
  Company Number: PHHY2012JP068244

PATIENT
  Age: 72 Year
  Sex: Male

DRUGS (1)
  1. AFINITOR [Suspect]
     Active Substance: EVEROLIMUS
     Indication: RENAL CELL CARCINOMA
     Dosage: UNK
     Route: 048
     Dates: start: 201201

REACTIONS (9)
  - Cardiac failure [Fatal]
  - Malignant neoplasm progression [Unknown]
  - Cardiac valve disease [Fatal]
  - Interstitial lung disease [Unknown]
  - Cachexia [Fatal]
  - Ascites [Unknown]
  - Asthenia [Fatal]
  - Metastases to peritoneum [Unknown]
  - Neoplasm progression [Unknown]

NARRATIVE: CASE EVENT DATE: 201206
